FAERS Safety Report 5950583-5 (Version None)
Quarter: 2008Q4

REPORT INFORMATION
  Report Type: 
  Country: None (occurrence: None)
  Receive Date: 20081022
  Receipt Date: 20080806
  Transmission Date: 20090506
  Serious: No
  Sender: FDA-Public Use
  Company Number: SPV1-2008-01679

PATIENT
  Age: 31 Year
  Sex: Female
  Weight: 68 kg

DRUGS (5)
  1. VYVANSE [Suspect]
     Indication: ATTENTION DEFICIT/HYPERACTIVITY DISORDER
     Dosage: 70 MG, 1X/DAY:QD, ORAL
     Route: 048
     Dates: start: 20080730
  2. MULTIVITAMIN /00097801/ (ASCORBIC ACID, CALCIUM PANTOTHENATE, ERGOCALC [Concomitant]
  3. PERCOCET /00446701/ (OXYCODONE HYDROCHLORIDE, OXYCODONE TEREPHTHALATE, [Concomitant]
  4. CYMBALTA [Concomitant]
  5. AMRIT (AMOXICILLIN TRIHYDRATE) [Concomitant]

REACTIONS (3)
  - BRUXISM [None]
  - TIC [None]
  - TRISMUS [None]
